FAERS Safety Report 8246978 (Version 5)
Quarter: 2014Q3

REPORT INFORMATION
  Report Type: Spontaneous
  Country: US (occurrence: None)
  Receive Date: 20111109
  Receipt Date: 20140910
  Transmission Date: 20150326
  Serious: Yes (Death, Hospitalization, Other)
  Sender: FDA-Public Use
  Company Number: ADR-2010-9324

PATIENT
  Sex: Male

DRUGS (1)
  1. LIORESAL [Suspect]
     Active Substance: BACLOFEN
     Indication: MUSCLE SPASTICITY
     Dosage: SEE B5 MCG, DAILY, INTR
     Route: 037

REACTIONS (16)
  - Convulsion [None]
  - Vomiting [None]
  - Agitation [None]
  - Irritability [None]
  - Nausea [None]
  - Pneumonia [None]
  - Drug withdrawal syndrome [None]
  - Musculoskeletal stiffness [None]
  - Clonus [None]
  - Muscle twitching [None]
  - Sepsis [None]
  - Condition aggravated [None]
  - Grimacing [None]
  - Moaning [None]
  - Device occlusion [None]
  - Muscle spasticity [None]
